FAERS Safety Report 11938959 (Version 1)
Quarter: 2016Q1

REPORT INFORMATION
  Report Type: Spontaneous
  Country: IT (occurrence: IT)
  Receive Date: 20160122
  Receipt Date: 20160122
  Transmission Date: 20160526
  Serious: Yes (Hospitalization)
  Sender: FDA-Public Use
  Company Number: IT-TEVA-606466ACC

PATIENT
  Age: 41 Year
  Sex: Female

DRUGS (2)
  1. CITALOPRAM [Suspect]
     Active Substance: CITALOPRAM HYDROBROMIDE
     Indication: PRODUCT USED FOR UNKNOWN INDICATION
     Dosage: 25 DF TOTAL
     Route: 048
     Dates: start: 20151018, end: 20151018
  2. ALPRAZOLAM. [Concomitant]
     Active Substance: ALPRAZOLAM
     Indication: PRODUCT USED FOR UNKNOWN INDICATION
     Dosage: 8 GTT
     Route: 048

REACTIONS (3)
  - Tremor [Recovering/Resolving]
  - Abnormal behaviour [Unknown]
  - Restlessness [Recovering/Resolving]

NARRATIVE: CASE EVENT DATE: 20151018
